FAERS Safety Report 23903177 (Version 2)
Quarter: 2024Q2

REPORT INFORMATION
  Report Type: Spontaneous
  Country: AU (occurrence: AU)
  Receive Date: 20240527
  Receipt Date: 20240605
  Transmission Date: 20240722
  Serious: Yes (Hospitalization)
  Sender: FDA-Public Use
  Company Number: AU-BEH-2024172691

PATIENT
  Age: 81 Year
  Sex: Female

DRUGS (5)
  1. HUMAN IMMUNOGLOBULIN G [Suspect]
     Active Substance: HUMAN IMMUNOGLOBULIN G
     Indication: Immune thrombocytopenia
     Dosage: UNK
     Route: 065
     Dates: start: 20220912, end: 20240510
  2. HUMAN IMMUNOGLOBULIN G [Suspect]
     Active Substance: HUMAN IMMUNOGLOBULIN G
     Dosage: UNK
     Route: 065
  3. HUMAN IMMUNOGLOBULIN G [Suspect]
     Active Substance: HUMAN IMMUNOGLOBULIN G
     Dosage: UNK
     Route: 065
  4. LORATADINE [Concomitant]
     Active Substance: LORATADINE
     Indication: Premedication
  5. LORATADINE [Concomitant]
     Active Substance: LORATADINE
     Indication: Premedication

REACTIONS (4)
  - Loss of consciousness [Unknown]
  - Vomiting [Unknown]
  - Pruritus [Unknown]
  - Rash [Unknown]
